FAERS Safety Report 20349117 (Version 1)
Quarter: 2022Q1

REPORT INFORMATION
  Report Type: Spontaneous
  Country: US (occurrence: None)
  Receive Date: 20220119
  Receipt Date: 20220119
  Transmission Date: 20220423
  Serious: Yes (Hospitalization, Other)
  Sender: FDA-Public Use
  Company Number: US-Unichem Pharmaceuticals (USA) Inc-UCM202201-000008

PATIENT
  Age: 39 Year
  Sex: Male

DRUGS (1)
  1. METFORMIN HYDROCHLORIDE [Suspect]
     Active Substance: METFORMIN HYDROCHLORIDE
     Indication: Overdose
     Dosage: UNKNOWN

REACTIONS (6)
  - Coma [Recovered/Resolved]
  - Distributive shock [Recovered/Resolved]
  - Hypotension [Recovered/Resolved]
  - Hypoglycaemia [Recovered/Resolved]
  - Blood lactic acid increased [Recovered/Resolved]
  - Overdose [Unknown]
